FAERS Safety Report 14019806 (Version 1)
Quarter: 2017Q3

REPORT INFORMATION
  Report Type: Spontaneous
  Country: US (occurrence: US)
  Receive Date: 20170928
  Receipt Date: 20170928
  Transmission Date: 20171128
  Serious: Yes (Other)
  Sender: FDA-Public Use
  Company Number: US-MYLANLABS-2017M1061084

PATIENT
  Sex: Female

DRUGS (2)
  1. CORTIFOAM [Suspect]
     Active Substance: HYDROCORTISONE ACETATE
     Indication: RECTAL HAEMORRHAGE
     Dosage: ONE APPLICATION, BID
     Route: 061
  2. CORTIFOAM [Suspect]
     Active Substance: HYDROCORTISONE ACETATE
     Dosage: ONE APPLICATION, BID
     Route: 061

REACTIONS (8)
  - Abdominal pain upper [Recovering/Resolving]
  - Condition aggravated [Not Recovered/Not Resolved]
  - Abdominal distension [Unknown]
  - Malaise [Unknown]
  - Rectal discharge [Recovering/Resolving]
  - Abdominal discomfort [Unknown]
  - Rectal haemorrhage [Not Recovered/Not Resolved]
  - Intentional underdose [Unknown]
